APPROVED DRUG PRODUCT: OCALIVA
Active Ingredient: OBETICHOLIC ACID
Strength: 5MG
Dosage Form/Route: TABLET;ORAL
Application: N207999 | Product #001
Applicant: INTERCEPT PHARMACEUTICALS INC
Approved: May 27, 2016 | RLD: Yes | RS: No | Type: DISCN

PATENTS:
Patent 10758549 | Expires: Apr 26, 2036
Patent 10047117 | Expires: Sep 6, 2033
Patent 10751349 | Expires: Apr 26, 2036
Patent 10174073 | Expires: Jun 17, 2033
Patent RE48286 | Expires: Feb 21, 2027
Patent 10052337 | Expires: Apr 26, 2036
Patent 9238673 | Expires: Jun 17, 2033